FAERS Safety Report 4927455-8 (Version None)
Quarter: 2006Q1

REPORT INFORMATION
  Report Type: 
  Country: None (occurrence: None)
  Receive Date: 20060228
  Receipt Date: 20060217
  Transmission Date: 20060701
  Serious: Yes (Hospitalization)
  Sender: FDA-Public Use
  Company Number: ES-ROCHE-436720

PATIENT
  Age: 77 Year
  Sex: Male
  Weight: 73 kg

DRUGS (7)
  1. TORADOL [Suspect]
     Route: 042
     Dates: start: 20051021, end: 20051024
  2. VFEND [Suspect]
     Indication: ASPERGILLOSIS
     Dosage: STOP DATE REPORTED AS 00 OCT 2005
     Route: 042
     Dates: start: 20051018
  3. VFEND [Concomitant]
     Dosage: START DATE REPORTED AS 00 OCT 2005
     Route: 048
     Dates: end: 20051024
  4. FRAXIPARINA [Concomitant]
     Indication: DRUG USE FOR UNKNOWN INDICATION
     Route: 058
     Dates: start: 20051021, end: 20051024
  5. OMEPRAZOLE [Concomitant]
     Route: 048
     Dates: start: 20051021
  6. INSULIN [Concomitant]
     Route: 058
  7. ATROVENT [Concomitant]
     Route: 055

REACTIONS (1)
  - CONFUSIONAL STATE [None]
